FAERS Safety Report 9549901 (Version 3)
Quarter: 2013Q4

REPORT INFORMATION
  Report Type: Spontaneous
  Country: US (occurrence: US)
  Receive Date: 20130924
  Receipt Date: 20131025
  Transmission Date: 20140711
  Serious: Yes (Hospitalization, Other)
  Sender: FDA-Public Use
  Company Number: CHPA2013US014487

PATIENT
  Age: 32 Year
  Sex: Female

DRUGS (9)
  1. EXCEDRIN MIGRAINE [Suspect]
     Indication: MIGRAINE
     Dosage: 1 IN AM, 1 IN PM AS NEEDED
     Route: 048
     Dates: start: 1999
  2. EXCEDRIN EXTRA STRENGTH [Suspect]
     Indication: HEADACHE
     Dosage: 2 DF, PRN
     Route: 048
     Dates: start: 2003
  3. EXCEDRIN EXTRA STRENGTH [Suspect]
     Indication: BACK PAIN
  4. EXCEDRIN EXTRA STRENGTH [Suspect]
     Indication: MYALGIA
  5. DARVOCET /00220901/ [Suspect]
     Indication: HEADACHE
     Dosage: UNK,UNK
     Dates: start: 2002
  6. INSULIN [Suspect]
     Indication: DIABETES MELLITUS
     Dosage: UNK,UNK
     Dates: start: 1998
  7. LEVEMIR [Concomitant]
     Indication: DIABETES MELLITUS
     Dosage: 10 DF, BID
     Dates: start: 2013
  8. METFORMIN [Concomitant]
     Indication: DIABETES MELLITUS
     Dosage: 1 DF, BID
     Route: 048
     Dates: start: 2013
  9. GLIMEPIRIDE [Concomitant]
     Indication: DIABETES MELLITUS
     Dosage: 1 DF, BID
     Route: 048
     Dates: start: 2013

REACTIONS (12)
  - Diabetes mellitus [Recovered/Resolved]
  - Fibromyalgia [Not Recovered/Not Resolved]
  - Haemorrhagic diathesis [Not Recovered/Not Resolved]
  - Gestational diabetes [Recovered/Resolved]
  - Drug withdrawal syndrome [Unknown]
  - Crying [Unknown]
  - Condition aggravated [Recovered/Resolved]
  - Headache [Unknown]
  - Migraine [Unknown]
  - Blood pressure fluctuation [Unknown]
  - Underdose [Unknown]
  - Maternal exposure during pregnancy [Unknown]
